FAERS Safety Report 24839295 (Version 1)
Quarter: 2025Q1

REPORT INFORMATION
  Report Type: Spontaneous
  Country: US (occurrence: US)
  Receive Date: 20250114
  Receipt Date: 20250114
  Transmission Date: 20250409
  Serious: Yes (Death, Hospitalization)
  Sender: AMGEN
  Company Number: US-AMGEN-USASP2025003239

PATIENT
  Age: 59 Year
  Sex: Male

DRUGS (1)
  1. ADALIMUMAB [Suspect]
     Active Substance: ADALIMUMAB
     Indication: Rheumatoid arthritis
     Route: 065

REACTIONS (7)
  - Pulmonary histoplasmosis [Fatal]
  - Respiratory failure [Unknown]
  - Aspiration [Unknown]
  - Cachexia [Unknown]
  - Streptococcal bacteraemia [Unknown]
  - Pneumonia [Unknown]
  - Sepsis [Unknown]
